FAERS Safety Report 23736960 (Version 1)
Quarter: 2024Q2

REPORT INFORMATION
  Report Type: Spontaneous
  Country: US (occurrence: US)
  Receive Date: 20240412
  Receipt Date: 20240412
  Transmission Date: 20240715
  Serious: No
  Sender: FDA-Public Use
  Company Number: US-BAUSCH-BL-2024-005510

PATIENT
  Age: 64 Year
  Sex: Female
  Weight: 56.75 kg

DRUGS (2)
  1. LORAZEPAM [Suspect]
     Active Substance: LORAZEPAM
     Indication: Insomnia
     Dosage: 1MG DAILY AND 2MG AT NIGHT
     Route: 048
     Dates: start: 2024
  2. LORAZEPAM [Suspect]
     Active Substance: LORAZEPAM
     Indication: Product use in unapproved indication

REACTIONS (8)
  - Head discomfort [Unknown]
  - Sleep disorder [Unknown]
  - Malaise [Unknown]
  - Fatigue [Unknown]
  - Nausea [Unknown]
  - Insurance issue [Unknown]
  - Product substitution issue [Unknown]
  - Product use in unapproved indication [Unknown]

NARRATIVE: CASE EVENT DATE: 20240101
